FAERS Safety Report 9864476 (Version 3)
Quarter: 2014Q1

REPORT INFORMATION
  Report Type: Spontaneous
  Country: US (occurrence: US)
  Receive Date: 20140203
  Receipt Date: 20140307
  Transmission Date: 20141002
  Serious: No
  Sender: FDA-Public Use
  Company Number: US-AMGEN-USASP2013084808

PATIENT
  Age: 51 Year
  Sex: Female

DRUGS (2)
  1. ENBREL [Suspect]
     Indication: PSORIASIS
     Dosage: 50 MG, 2 TIMES/WK
     Route: 065
     Dates: start: 20131106, end: 20131204
  2. MTX                                /00113801/ [Concomitant]
     Dosage: 2.5 MG,(8 PILLS PER WEEK)
     Route: 048
     Dates: start: 20130828

REACTIONS (11)
  - Depression [Recovered/Resolved]
  - Neck pain [Not Recovered/Not Resolved]
  - Back pain [Not Recovered/Not Resolved]
  - Obsessive thoughts [Recovered/Resolved]
  - Adverse event [Unknown]
  - Psoriasis [Not Recovered/Not Resolved]
  - Injection site reaction [Recovering/Resolving]
  - Injection site erythema [Not Recovered/Not Resolved]
  - Injection site bruising [Not Recovered/Not Resolved]
  - Injection site swelling [Not Recovered/Not Resolved]
  - Injection site discolouration [Recovering/Resolving]
